FAERS Safety Report 5702600-5 (Version None)
Quarter: 2008Q2

REPORT INFORMATION
  Report Type: 
  Country: None (occurrence: None)
  Receive Date: 20080411
  Receipt Date: 20080402
  Transmission Date: 20081010
  Serious: Yes (Death, Life-Threatening)
  Sender: FDA-Public Use
  Company Number: ZA-JNJFOC-20080400992

PATIENT
  Age: 60 Year
  Sex: Male
  Weight: 54.43 kg

DRUGS (6)
  1. REVELLEX [Suspect]
     Dosage: MAINTENANCE DOSE, WEEK 24
     Route: 042
  2. REVELLEX [Suspect]
     Dosage: MAINTENANCE DOSE, WEEK 16
     Route: 042
  3. REVELLEX [Suspect]
     Dosage: MAINTENANCE DOSE, WEEK 8
     Route: 042
  4. REVELLEX [Suspect]
     Dosage: INDUCTION DOSE, WEEK 6
     Route: 042
  5. REVELLEX [Suspect]
     Dosage: INDUCTION DOSE, WEEK 2
     Route: 042
  6. REVELLEX [Suspect]
     Indication: RHEUMATOID ARTHRITIS
     Dosage: INDUCTION DOSE, WEEK 0
     Route: 042

REACTIONS (1)
  - MYOCARDIAL INFARCTION [None]
